FAERS Safety Report 4674062-0 (Version None)
Quarter: 2005Q2

REPORT INFORMATION
  Report Type: 
  Country: None (occurrence: None)
  Receive Date: 20050525
  Receipt Date: 20050512
  Transmission Date: 20051028
  Serious: Yes (Death, Hospitalization)
  Sender: FDA-Public Use
  Company Number: 05H-167-0299043-00

PATIENT
  Age: 75 Year
  Sex: Female

DRUGS (15)
  1. DILTIAZEM HCL [Suspect]
     Indication: HYPERTENSION
     Dates: end: 20020301
  2. FENTANYL CITRATE [Suspect]
     Indication: INDUCTION OF ANAESTHESIA
     Dosage: INTRAVENOUS DRIP
     Route: 041
     Dates: start: 20020301, end: 20020301
  3. MIDAZOLAM HYDROCHLORIDE INUECTION (MIDAZOLAM HYDROCHLORIDE) [Suspect]
     Indication: INDUCTION OF ANAESTHESIA
     Dosage: INTRAVENOUS DRIP
     Route: 041
     Dates: start: 20020301, end: 20020301
  4. PANCURONIUM BROMIDE INJECTION (PANCURONIUM BROMIDE) [Suspect]
     Indication: MUSCLE RELAXANT THERAPY
     Dosage: INTRAVENOUS DRIP
     Route: 041
     Dates: start: 20020301, end: 20020301
  5. PROPOFOL [Suspect]
     Indication: MAINTENANCE OF ANAESTHESIA
     Dosage: INTRAVENOUS DRIP
     Route: 041
     Dates: start: 20020301, end: 20020301
  6. ACETAMINOPHEN W/ CODEINE [Suspect]
     Indication: DUODENAL ULCER
  7. ACETYLSALICYLIC ACID [Suspect]
     Indication: PAIN
     Dosage: SEE IMAGE
     Dates: start: 20020301, end: 20020101
  8. BUDESONIDE [Suspect]
     Indication: ASTHMA
     Dosage: SEE IMAGE
     Dates: start: 20020301, end: 20020101
  9. LEFLUNOMIDE [Suspect]
     Indication: RHEUMATOID ARTHRITIS
     Dosage: 1 EVERY DAY,14 MONTHS BEFORE SURGERY, STOPPED 5 DAYS BEFORE SURGERY
     Dates: start: 20020301, end: 20020101
  10. LEFLUNOMIDE [Suspect]
     Indication: RHEUMATOID ARTHRITIS
     Dosage: 1 EVERY DAY,14 MONTHS BEFORE SURGERY, STOPPED 5 DAYS BEFORE SURGERY
  11. LISINOPRIL [Suspect]
     Dates: start: 20020301, end: 20020101
  12. NITROGLYCERIN [Suspect]
     Indication: PAIN
     Dosage: SEE IMAGE, PER ORAL
     Route: 048
     Dates: start: 20020301, end: 20020101
  13. ATORVASTATIN CALCIUM [Suspect]
     Indication: HYPERCHOLESTEROLAEMIA
     Dosage: SEE IMAGE
     Dates: start: 20020301, end: 20020101
  14. QUININE SULFATE [Suspect]
     Indication: MUSCLE SPASMS
     Dosage: SEE IMAGE
     Dates: start: 20050301, end: 20020101
  15. LANSOPRAZOLE [Suspect]
     Indication: DUODENAL ULCER
     Dosage: SEE IMAGE
     Dates: start: 20050301, end: 20020101

REACTIONS (10)
  - COAGULOPATHY [None]
  - GASTROINTESTINAL HAEMORRHAGE [None]
  - HAEMODIALYSIS [None]
  - HEPATIC FAILURE [None]
  - HEPATIC INFARCTION [None]
  - HEPATORENAL SYNDROME [None]
  - HYPOVOLAEMIA [None]
  - LABILE BLOOD PRESSURE [None]
  - POST PROCEDURAL HAEMORRHAGE [None]
  - RENAL FAILURE [None]
